FAERS Safety Report 5757141-6 (Version None)
Quarter: 2008Q2

REPORT INFORMATION
  Report Type: 
  Country: None (occurrence: None)
  Receive Date: 20080529
  Receipt Date: 20080520
  Transmission Date: 20081010
  Serious: Yes (Death)
  Sender: FDA-Public Use
  Company Number: 20085091

PATIENT
  Sex: Female

DRUGS (1)
  1. LIORESAL [Suspect]
     Indication: MUSCLE SPASTICITY
     Dosage: 195 MCG, DAILY, INTRATHECAL
     Route: 037

REACTIONS (6)
  - APHASIA [None]
  - ASPIRATION [None]
  - BEDRIDDEN [None]
  - COGNITIVE DISORDER [None]
  - DISEASE PROGRESSION [None]
  - REFUSAL OF TREATMENT BY RELATIVE [None]
